FAERS Safety Report 7104820-4 (Version None)
Quarter: 2010Q4

REPORT INFORMATION
  Report Type: 
  Country: None (occurrence: None)
  Receive Date: 20101116
  Receipt Date: 20101105
  Transmission Date: 20110411
  Serious: Yes (Other)
  Sender: FDA-Public Use
  Company Number: DE-JNJFOC-20101104066

PATIENT
  Sex: Female
  Weight: 85 kg

DRUGS (8)
  1. PALEXIA RETARD [Suspect]
     Indication: SCIATICA
     Route: 048
  2. PALEXIA RETARD [Suspect]
     Route: 048
  3. OXYCODON [Concomitant]
  4. OXYCODON [Concomitant]
  5. CARBAMAZEPINE [Concomitant]
  6. OMEPRAZOLE [Concomitant]
  7. TOLPERISONE [Concomitant]
  8. NULYTELY [Concomitant]

REACTIONS (5)
  - DEPRESSION [None]
  - DIARRHOEA [None]
  - NAUSEA [None]
  - NIGHTMARE [None]
  - SUICIDAL IDEATION [None]
